FAERS Safety Report 4571622-2 (Version None)
Quarter: 2005Q1

REPORT INFORMATION
  Report Type: 
  Country: None (occurrence: None)
  Receive Date: 20050207
  Receipt Date: 20050128
  Transmission Date: 20050727
  Serious: Yes (Hospitalization)
  Sender: FDA-Public Use
  Company Number: 200510372FR

PATIENT
  Age: 17 Year
  Sex: Female

DRUGS (1)
  1. BIRODOGYL [Suspect]
     Indication: TOOTH ABSCESS
     Route: 048
     Dates: start: 20040101, end: 20040101

REACTIONS (1)
  - MULTIPLE SCLEROSIS RELAPSE [None]
